FAERS Safety Report 8244343-2 (Version None)
Quarter: 2012Q1

REPORT INFORMATION
  Report Type: 
  Country: None (occurrence: None)
  Receive Date: 20120329
  Receipt Date: 20120326
  Transmission Date: 20120608
  Serious: Yes (Other)
  Sender: FDA-Public Use
  Company Number: US-PFIZER INC-2012038764

PATIENT
  Sex: Male
  Weight: 41.72 kg

DRUGS (17)
  1. XANAX [Concomitant]
     Dosage: UNK
  2. TYLENOL [Concomitant]
     Dosage: UNK
  3. LIPITOR [Suspect]
     Indication: BLOOD CHOLESTEROL INCREASED
     Dosage: 40 MG, ONCE A DAY
     Route: 048
     Dates: start: 20000101
  4. RESTORIL [Concomitant]
     Dosage: UNK
  5. NEURONTIN [Suspect]
     Dosage: 600 MG, FOUR TIMES A DAY
     Route: 048
     Dates: start: 20000101
  6. NAPROXEN [Concomitant]
     Dosage: UNK
  7. ADVAIR DISKUS 100/50 [Concomitant]
     Dosage: UNK
  8. WELLBUTRIN [Concomitant]
     Dosage: UNK
  9. PAXIL [Concomitant]
     Dosage: UNK
  10. FLOMAX [Concomitant]
     Dosage: UNK
  11. HYDROCODONE [Concomitant]
     Dosage: UNK
  12. CELEBREX [Suspect]
     Indication: ARTHRALGIA
     Dosage: 200 MG, ONCE A DAY
     Route: 048
     Dates: start: 20000101
  13. OXYGEN [Concomitant]
     Dosage: UNK
  14. ULTRAM [Concomitant]
     Dosage: UNK
  15. ASPIRIN [Concomitant]
     Dosage: 81 MG, UNK
  16. SPIRIVA [Concomitant]
     Dosage: UNK
  17. ALBUTEROL [Concomitant]
     Dosage: UNK

REACTIONS (3)
  - BACK DISORDER [None]
  - WEIGHT DECREASED [None]
  - SURGERY [None]
